FAERS Safety Report 8249232-5 (Version None)
Quarter: 2012Q1

REPORT INFORMATION
  Report Type: 
  Country: None (occurrence: None)
  Receive Date: 20120327
  Receipt Date: 20120315
  Transmission Date: 20120608
  Serious: Yes (Hospitalization, Other)
  Sender: FDA-Public Use
  Company Number: 2012MA003462

PATIENT
  Sex: Male
  Weight: 135.8977 kg

DRUGS (28)
  1. HUMALOG [Concomitant]
  2. ARANESP [Concomitant]
  3. HEPARIN [Concomitant]
  4. MAGNESIUM OXIDE [Concomitant]
  5. PROTONIX [Concomitant]
  6. TYLENOL [Concomitant]
  7. CLONIDINE [Concomitant]
  8. COREG [Concomitant]
  9. PEPCID [Concomitant]
  10. ERGOCALCIFEROL [Concomitant]
  11. FERROUS SULFATE TAB [Concomitant]
  12. EPOGEN [Concomitant]
  13. CALCIUM CARBONATE [Concomitant]
  14. ASPIRIN [Concomitant]
  15. LASIX [Concomitant]
  16. AVAPRO [Concomitant]
  17. AUGMENTIN '125' [Concomitant]
  18. IBUPROFEN [Concomitant]
  19. DIGOXIN [Suspect]
     Indication: PRODUCT USED FOR UNKNOWN INDICATION
     Dosage: 250 MCG;UNK;PO
     Route: 048
     Dates: start: 20060301, end: 20080601
  20. LANTUS [Concomitant]
  21. NORVASC [Concomitant]
  22. CALCIUM CARBONATE [Concomitant]
  23. REGULAR INSULIN [Concomitant]
  24. LYRICA [Concomitant]
  25. NITROGLYCERIN [Concomitant]
  26. POTASSIUM CHLORIDE [Concomitant]
  27. NPH INSULIN [Concomitant]
  28. NEXIUM [Concomitant]

REACTIONS (68)
  - OEDEMA PERIPHERAL [None]
  - WEIGHT INCREASED [None]
  - HYPERTENSIVE CARDIOMYOPATHY [None]
  - FLUID OVERLOAD [None]
  - RENAL CYST [None]
  - HEADACHE [None]
  - WALKING AID USER [None]
  - ABDOMINAL DISTENSION [None]
  - ORTHOPNOEA [None]
  - HYPOKALAEMIA [None]
  - AZOTAEMIA [None]
  - VISUAL IMPAIRMENT [None]
  - BALANCE DISORDER [None]
  - PULSE ABSENT [None]
  - LYMPHOEDEMA [None]
  - MULTIPLE INJURIES [None]
  - CARDIAC DISORDER [None]
  - CHEST PAIN [None]
  - ANAEMIA [None]
  - LEFT ATRIAL DILATATION [None]
  - LEFT VENTRICULAR HYPERTROPHY [None]
  - VENOUS INSUFFICIENCY [None]
  - ARTHRITIS [None]
  - HYPERKERATOSIS [None]
  - SKIN INDURATION [None]
  - VESSEL PUNCTURE SITE HAEMORRHAGE [None]
  - GENERALISED OEDEMA [None]
  - ACTIVITIES OF DAILY LIVING IMPAIRED [None]
  - MYOCARDIAL ISCHAEMIA [None]
  - BLOOD PRESSURE INCREASED [None]
  - PAIN [None]
  - WAIST CIRCUMFERENCE INCREASED [None]
  - DIABETES MELLITUS INADEQUATE CONTROL [None]
  - HAEMODIALYSIS [None]
  - TRICUSPID VALVE INCOMPETENCE [None]
  - PNEUMONIA [None]
  - BREATH SOUNDS ABNORMAL [None]
  - RALES [None]
  - IRON BINDING CAPACITY TOTAL DECREASED [None]
  - ANXIETY [None]
  - ECONOMIC PROBLEM [None]
  - DYSPNOEA [None]
  - DIASTOLIC DYSFUNCTION [None]
  - RENAL FAILURE CHRONIC [None]
  - FATIGUE [None]
  - PULMONARY GRANULOMA [None]
  - SKIN HYPERPIGMENTATION [None]
  - ANGINA PECTORIS [None]
  - PROTEINURIA [None]
  - CARDIOMEGALY [None]
  - ATELECTASIS [None]
  - VISION BLURRED [None]
  - ELECTROCARDIOGRAM T WAVE INVERSION [None]
  - BLOOD ALBUMIN DECREASED [None]
  - CARDIAC FAILURE CONGESTIVE [None]
  - DIABETIC NEPHROPATHY [None]
  - TREATMENT NONCOMPLIANCE [None]
  - AGITATION [None]
  - PENILE OEDEMA [None]
  - HYPERPARATHYROIDISM SECONDARY [None]
  - HYPOCALCAEMIA [None]
  - ELECTROCARDIOGRAM QT PROLONGED [None]
  - BLOOD GLUCOSE INCREASED [None]
  - LICHENIFICATION [None]
  - SCROTAL OEDEMA [None]
  - LOCALISED OEDEMA [None]
  - CARDIOACTIVE DRUG LEVEL INCREASED [None]
  - SCAR [None]
